APPROVED DRUG PRODUCT: VIBATIV
Active Ingredient: TELAVANCIN HYDROCHLORIDE
Strength: EQ 250MG BASE/VIAL
Dosage Form/Route: POWDER;INTRAVENOUS
Application: N022110 | Product #001
Applicant: CUMBERLAND PHARMACEUTICALS INC
Approved: Sep 11, 2009 | RLD: Yes | RS: No | Type: DISCN

PATENTS:
Patent 7531623 | Expires: Jan 1, 2027